APPROVED DRUG PRODUCT: COLCRYS
Active Ingredient: COLCHICINE
Strength: 0.6MG **Federal Register determination that product was not discontinued or withdrawn for safety or effectiveness reasons**
Dosage Form/Route: TABLET;ORAL
Application: N022352 | Product #001
Applicant: TAKEDA PHARMACEUTICALS USA INC
Approved: Jul 29, 2009 | RLD: Yes | RS: No | Type: DISCN

PATENTS:
Patent 7601758 | Expires: Feb 10, 2029
Patent 7906519 | Expires: Feb 17, 2029
Patent 7935731 | Expires: Dec 3, 2028
Patent 8093296 | Expires: Oct 6, 2028
Patent 8093298 | Expires: Oct 6, 2028
Patent 8415395 | Expires: Oct 6, 2028
Patent 8440721 | Expires: Feb 17, 2029
Patent 7981938 | Expires: Oct 6, 2028
Patent 7964648 | Expires: Oct 6, 2028
Patent 7619004 | Expires: Dec 3, 2028
Patent 7820681 | Expires: Feb 17, 2029
Patent 7915269 | Expires: Feb 17, 2029
Patent 7964647 | Expires: Oct 6, 2028
Patent 8093297 | Expires: Oct 6, 2028
Patent 8097655 | Expires: Oct 6, 2028
Patent 8415396 | Expires: Oct 6, 2028
Patent 8440722 | Expires: Feb 17, 2029